FAERS Safety Report 19231005 (Version 1)
Quarter: 2021Q2

REPORT INFORMATION
  Report Type: Spontaneous
  Country: US (occurrence: US)
  Receive Date: 20210507
  Receipt Date: 20210507
  Transmission Date: 20210717
  Serious: No
  Sender: FDA-Public Use
  Company Number: US-SA-2021SA146886

PATIENT
  Sex: Female

DRUGS (2)
  1. XYZAL ALLERGY 24HR [Suspect]
     Active Substance: LEVOCETIRIZINE DIHYDROCHLORIDE
     Indication: DERMATITIS ALLERGIC
     Dosage: BEFORE BED
     Route: 065
  2. CLARITIN [CLARITHROMYCIN] [Concomitant]
     Active Substance: CLARITHROMYCIN
     Dosage: UNK
     Route: 065

REACTIONS (6)
  - Nasal congestion [Unknown]
  - Hypersensitivity [Unknown]
  - Mobility decreased [Unknown]
  - Adverse reaction [Unknown]
  - Feeling abnormal [Unknown]
  - Dry throat [Unknown]
